FAERS Safety Report 23621521 (Version 1)
Quarter: 2024Q1

REPORT INFORMATION
  Report Type: Spontaneous
  Country: FR (occurrence: FR)
  Receive Date: 20240312
  Receipt Date: 20240312
  Transmission Date: 20240410
  Serious: Yes (Other)
  Sender: FDA-Public Use
  Company Number: FR-AFSSAPS-DJ2023001418

PATIENT
  Age: 73 Year
  Sex: Male
  Weight: 60 kg

DRUGS (2)
  1. QUETIAPINE [Suspect]
     Active Substance: QUETIAPINE
     Indication: Wrong patient received product
     Dosage: 50 MILLIGRAM, TOTAL 1
     Route: 048
     Dates: start: 20231025, end: 20231025
  2. OXAZEPAM [Suspect]
     Active Substance: OXAZEPAM
     Indication: Wrong patient received product
     Dosage: 10 MILLIGRAM, TOTAL 1
     Route: 048
     Dates: start: 20231025, end: 20231025

REACTIONS (3)
  - Somnolence [Recovered/Resolved]
  - Wrong patient received product [Recovered/Resolved]
  - Hypothermia [Recovered/Resolved]

NARRATIVE: CASE EVENT DATE: 20231025
